FAERS Safety Report 9121310 (Version 1)
Quarter: 2013Q1

REPORT INFORMATION
  Report Type: Spontaneous
  Country: US (occurrence: US)
  Receive Date: 20130225
  Receipt Date: 20130225
  Transmission Date: 20140127
  Serious: Yes (Other)
  Sender: FDA-Public Use
  Company Number: US-BRISTOL-MYERS SQUIBB COMPANY-17389024

PATIENT
  Age: 12 Year
  Sex: Male

DRUGS (3)
  1. ABILIFY [Suspect]
     Dosage: DOSE INCREASED TO:5MG
  2. METHYLPHENIDATE [Suspect]
  3. CLONIDINE [Suspect]

REACTIONS (2)
  - Mania [Unknown]
  - Dystonia [Recovered/Resolved]
